FAERS Safety Report 9171500 (Version 2)
Quarter: 2013Q1

REPORT INFORMATION
  Report Type: Spontaneous
  Country: RU (occurrence: None)
  Receive Date: 20130311
  Receipt Date: 20130313
  Transmission Date: 20140127
  Serious: Yes (Hospitalization)
  Sender: FDA-Public Use
  Company Number: RU-1197013

PATIENT
  Age: 58 Year
  Sex: Male

DRUGS (1)
  1. TRAVATAN [Suspect]

REACTIONS (2)
  - Visual acuity reduced [None]
  - Hyphaema [None]
